FAERS Safety Report 4537868-4 (Version None)
Quarter: 2004Q4

REPORT INFORMATION
  Report Type: 
  Country: None (occurrence: None)
  Receive Date: 20041224
  Receipt Date: 20040929
  Transmission Date: 20050328
  Serious: Yes (Hospitalization)
  Sender: FDA-Public Use
  Company Number: FR-MERCK-0409FRA00106

PATIENT
  Age: 24 Year
  Sex: Male

DRUGS (2)
  1. STROMECTOL [Suspect]
     Indication: ACARODERMATITIS
     Route: 048
     Dates: start: 20040825, end: 20040825
  2. OXATOMIDE [Suspect]
     Indication: ACARODERMATITIS
     Route: 048
     Dates: start: 20040824, end: 20040825

REACTIONS (5)
  - ASTHENIA [None]
  - CONFUSIONAL STATE [None]
  - CONVULSION [None]
  - FALL [None]
  - HEADACHE [None]
